FAERS Safety Report 10202417 (Version 2)
Quarter: 2014Q2

REPORT INFORMATION
  Report Type: Spontaneous
  Country: US (occurrence: US)
  Receive Date: 20140528
  Receipt Date: 20140528
  Transmission Date: 20141212
  Serious: No
  Sender: FDA-Public Use
  Company Number: US-ASTRAZENECA-2014SE23238

PATIENT
  Age: 5 Year
  Sex: Male
  Weight: 20.4 kg

DRUGS (3)
  1. SYMBICORT [Suspect]
     Indication: ASTHMA
     Dosage: 80/4.5, 2 PUFFS BID
     Route: 055
     Dates: start: 201308
  2. MONTELUKAST [Concomitant]
     Indication: ASTHMA
     Route: 048
     Dates: start: 2011
  3. ZYRTEC GENERIC [Concomitant]
     Indication: SEASONAL ALLERGY
     Route: 048

REACTIONS (4)
  - Nasal discomfort [Unknown]
  - Intentional product misuse [Not Recovered/Not Resolved]
  - Off label use [Not Recovered/Not Resolved]
  - Drug effect increased [Unknown]
